FAERS Safety Report 4533592-2 (Version None)
Quarter: 2004Q4

REPORT INFORMATION
  Report Type: 
  Country: None (occurrence: None)
  Receive Date: 20041221
  Receipt Date: 20041210
  Transmission Date: 20050328
  Serious: Yes (Other)
  Sender: FDA-Public Use
  Company Number: JP-JNJFOC-20040606650

PATIENT
  Age: 75 Year
  Sex: Female

DRUGS (6)
  1. RISPERDAL [Suspect]
     Indication: HALLUCINATION, AUDITORY
     Route: 049
     Dates: start: 20040525, end: 20040607
  2. NITRAZEPAM [Concomitant]
     Route: 049
  3. DIAZEPAM [Concomitant]
     Route: 049
  4. SULPRIDE [Concomitant]
     Route: 049
  5. PEROSPIRONE [Concomitant]
  6. OLANZAPINE [Concomitant]

REACTIONS (3)
  - ANAEMIA [None]
  - LEUKOPENIA [None]
  - THROMBOCYTOPENIA [None]
